FAERS Safety Report 8886782 (Version 1)
Quarter: 2012Q4

REPORT INFORMATION
  Report Type: 
  Country: CZ (occurrence: CZ)
  Receive Date: 20121105
  Receipt Date: 20121105
  Transmission Date: 20130627
  Serious: Yes (Other)
  Sender: FDA-Public Use
  Company Number: CZ-PFIZER INC-2012270820

PATIENT
  Age: 47 Year
  Sex: Male

DRUGS (1)
  1. SERTRALINE HCL [Suspect]
     Indication: DEPRESSION
     Dosage: 50 mg, daily

REACTIONS (3)
  - Restless legs syndrome [Recovered/Resolved]
  - Sleep disorder [Recovered/Resolved]
  - Somnolence [Recovered/Resolved]
